FAERS Safety Report 9456137 (Version 5)
Quarter: 2013Q4

REPORT INFORMATION
  Report Type: Report from Study
  Country: DE (occurrence: DE)
  Receive Date: 20130813
  Receipt Date: 20131219
  Transmission Date: 20140711
  Serious: Yes (Death, Life-Threatening, Other)
  Sender: FDA-Public Use
  Company Number: DE-CELGENEUS-062-C5013-13080839

PATIENT
  Age: 73 Year
  Sex: Male
  Weight: 103 kg

DRUGS (1)
  1. CC-5013 [Suspect]
     Indication: MYELODYSPLASTIC SYNDROME
     Dosage: 10 MILLIGRAM
     Route: 048
     Dates: start: 20111125, end: 20121123

REACTIONS (2)
  - Plasma cell myeloma [Not Recovered/Not Resolved]
  - Acute myeloid leukaemia [Fatal]
